FAERS Safety Report 12618587 (Version 2)
Quarter: 2016Q3

REPORT INFORMATION
  Report Type: Spontaneous
  Country: AT (occurrence: AT)
  Receive Date: 20160803
  Receipt Date: 20160811
  Transmission Date: 20161109
  Serious: Yes (Other)
  Sender: FDA-Public Use
  Company Number: AT-ABBVIE-16K-009-1688020-00

PATIENT
  Age: 75 Year
  Sex: Male

DRUGS (1)
  1. DUODOPA [Suspect]
     Active Substance: CARBIDOPA\LEVODOPA
     Indication: PARKINSON^S DISEASE
     Dosage: 16H THERAPY:MD:8ML, CR:2.7ML/H, ED: 1ML
     Route: 050
     Dates: start: 20160215

REACTIONS (3)
  - Gastrooesophageal reflux disease [Unknown]
  - Gastritis haemorrhagic [Unknown]
  - Medical device site ulcer [Unknown]

NARRATIVE: CASE EVENT DATE: 20160720
